FAERS Safety Report 6043647-1 (Version None)
Quarter: 2009Q1

REPORT INFORMATION
  Report Type: 
  Country: None (occurrence: None)
  Receive Date: 20090115
  Receipt Date: 20090113
  Transmission Date: 20090719
  Serious: Yes (Death, Life-Threatening, Hospitalization)
  Sender: FDA-Public Use
  Company Number: SP02212

PATIENT
  Age: 81 Year
  Sex: Male

DRUGS (7)
  1. MESALAMINE [Suspect]
     Indication: COLITIS ULCERATIVE
  2. MADOPAR [Concomitant]
  3. CODEINE PHOSPHATE [Concomitant]
  4. METRONIDAZOLE [Concomitant]
  5. OMEPRAZOLE [Concomitant]
  6. ACETAMINOPHEN [Concomitant]
  7. PREDNISOLONE [Concomitant]

REACTIONS (1)
  - AGRANULOCYTOSIS [None]
